FAERS Safety Report 7958528-3 (Version None)
Quarter: 2011Q4

REPORT INFORMATION
  Report Type: 
  Country: None (occurrence: None)
  Receive Date: 20111206
  Receipt Date: 20111125
  Transmission Date: 20120403
  Serious: Yes (Other)
  Sender: FDA-Public Use
  Company Number: DE-BIOGENIDEC-2011BI023382

PATIENT
  Age: 45 Year
  Sex: Female

DRUGS (2)
  1. AVONEX [Suspect]
     Indication: RELAPSING-REMITTING MULTIPLE SCLEROSIS
     Route: 030
     Dates: start: 20110402, end: 20110611
  2. IBUPROFEN [Concomitant]
     Indication: PROPHYLAXIS

REACTIONS (2)
  - HEPATITIS [None]
  - HAEMANGIOMA OF LIVER [None]
